FAERS Safety Report 15599186 (Version 4)
Quarter: 2019Q4

REPORT INFORMATION
  Report Type: Spontaneous
  Country: US (occurrence: US)
  Receive Date: 20181108
  Receipt Date: 20191011
  Transmission Date: 20200122
  Serious: Yes (Other)
  Sender: FDA-Public Use
  Company Number: US-PFIZER INC-2018444435

PATIENT
  Age: 83 Year
  Sex: Female
  Weight: 58.97 kg

DRUGS (4)
  1. CAPECITABINE. [Interacting]
     Active Substance: CAPECITABINE
     Dosage: UNK
     Route: 048
     Dates: start: 201809, end: 201902
  2. DILANTIN [Suspect]
     Active Substance: PHENYTOIN
     Indication: SEIZURE
     Dosage: UNK
     Dates: start: 1956
  3. DILANTIN [Interacting]
     Active Substance: PHENYTOIN
     Dosage: 220 MG, DAILY (2 30MG PILLS AT NOON AND 1 100MG PILL AND 2 30MG PILL AT BED TIME)
  4. 5 FU [Interacting]
     Active Substance: FLUOROURACIL
     Dosage: UNK

REACTIONS (6)
  - Malaise [Unknown]
  - Drug interaction [Recovered/Resolved]
  - Anticonvulsant drug level increased [Recovered/Resolved]
  - Mental disorder [Unknown]
  - Feeling abnormal [Recovered/Resolved]
  - Cognitive disorder [Unknown]

NARRATIVE: CASE EVENT DATE: 2018
